FAERS Safety Report 11620178 (Version 3)
Quarter: 2016Q2

REPORT INFORMATION
  Report Type: Spontaneous
  Country: US (occurrence: US)
  Receive Date: 20151012
  Receipt Date: 20160422
  Transmission Date: 20160815
  Serious: No
  Sender: FDA-Public Use
  Company Number: US-SA-2015SA141467

PATIENT
  Age: 48 Year
  Sex: Male

DRUGS (8)
  1. HUMALOG [Concomitant]
     Active Substance: INSULIN LISPRO
     Dosage: DOSE:12.8 UNIT(S)
  2. AFREZZA [Suspect]
     Active Substance: INSULIN HUMAN
     Indication: TYPE 1 DIABETES MELLITUS
     Dosage: FOMR: CARTRIDGE/ INHALER?FREQUENCY:: AT MEALS/CORRECTION DOSE:8 UNIT(S)
     Route: 065
  3. AFREZZA [Suspect]
     Active Substance: INSULIN HUMAN
     Indication: TYPE 1 DIABETES MELLITUS
     Dosage: FOMR: CARTRIDGE/ INHALER?FREQUENCY:: AT MEALS/CORRECTION DOSE:8 UNIT(S)
     Route: 065
  4. HUMALOG [Concomitant]
     Active Substance: INSULIN LISPRO
     Dosage: DOSE:14.5 UNIT(S)
  5. AFREZZA [Suspect]
     Active Substance: INSULIN HUMAN
     Indication: TYPE 1 DIABETES MELLITUS
     Dosage: FOMR: CARTRIDGE/ INHALER?FREQUENCY:: AT MEALS/CORRECTION DOSE:4 UNIT(S)
     Route: 065
     Dates: start: 20150824
  6. AFREZZA [Suspect]
     Active Substance: INSULIN HUMAN
     Indication: TYPE 1 DIABETES MELLITUS
     Dosage: FOMR: CARTRIDGE/ INHALER?FREQUENCY:: AT MEALS/CORRECTION DOSE:4 UNIT(S)
     Route: 065
     Dates: start: 20150824
  7. AFREZZA [Suspect]
     Active Substance: INSULIN HUMAN
     Indication: TYPE 1 DIABETES MELLITUS
     Dosage: FOMR: CARTRIDGE/ INHALER?FREQUENCY:: AT MEALS/CORRECTION DOSE:4 UNIT(S)
     Route: 065
     Dates: start: 20150824
  8. AFREZZA [Suspect]
     Active Substance: INSULIN HUMAN
     Indication: TYPE 1 DIABETES MELLITUS
     Dosage: FOMR: CARTRIDGE/ INHALER?FREQUENCY:: AT MEALS/CORRECTION DOSE:8 UNIT(S)
     Route: 065

REACTIONS (4)
  - Off label use [Unknown]
  - Device physical property issue [Unknown]
  - Blood glucose increased [Unknown]
  - Drug ineffective [Unknown]
